FAERS Safety Report 7202621-X (Version None)
Quarter: 2010Q4

REPORT INFORMATION
  Report Type: 
  Country: None (occurrence: None)
  Receive Date: 20101216
  Receipt Date: 20101210
  Transmission Date: 20110411
  Serious: Yes (Hospitalization, Other)
  Sender: FDA-Public Use
  Company Number: 2010SP053045

PATIENT
  Age: 32 Year
  Sex: Female
  Weight: 72.5755 kg

DRUGS (3)
  1. NUVARING [Suspect]
     Indication: CONTRACEPTION
     Dates: start: 20021001
  2. DARVOCET [Suspect]
     Indication: PRODUCT USED FOR UNKNOWN INDICATION
  3. CODEINE [Suspect]
     Indication: PRODUCT USED FOR UNKNOWN INDICATION

REACTIONS (20)
  - ANXIETY [None]
  - ASTHMA [None]
  - ATELECTASIS [None]
  - BRONCHITIS [None]
  - CYST [None]
  - DEEP VEIN THROMBOSIS [None]
  - GASTROINTESTINAL DISORDER [None]
  - HYPERCOAGULATION [None]
  - LOBAR PNEUMONIA [None]
  - LUNG DISORDER [None]
  - LYMPHADENOPATHY [None]
  - MUSCLE STRAIN [None]
  - MUSCULOSKELETAL CHEST PAIN [None]
  - NASOPHARYNGITIS [None]
  - PAIN IN EXTREMITY [None]
  - PULMONARY EMBOLISM [None]
  - PULMONARY INFARCTION [None]
  - SYNCOPE [None]
  - THROMBOSIS [None]
  - VARICOSE VEIN [None]
